FAERS Safety Report 12245913 (Version 2)
Quarter: 2016Q2

REPORT INFORMATION
  Report Type: Spontaneous
  Country: US (occurrence: US)
  Receive Date: 20160407
  Receipt Date: 20160607
  Transmission Date: 20160815
  Serious: No
  Sender: FDA-Public Use
  Company Number: US-WATSON-2015-24096

PATIENT
  Age: 16 Year
  Sex: Female

DRUGS (3)
  1. LYRICA [Suspect]
     Active Substance: PREGABALIN
     Indication: ANALGESIC THERAPY
     Dosage: UNK UNK, UNKNOWN
     Route: 065
  2. NAPROXEN SODIUM (WATSON LABORATORIES) [Suspect]
     Active Substance: NAPROXEN SODIUM
     Indication: ANALGESIC THERAPY
     Dosage: UNK UNK, UNKNOWN
     Route: 065
  3. NORTRIPTYLINE HYDROCHLORIDE (WATSON LABORATORIES) [Suspect]
     Active Substance: NORTRIPTYLINE HYDROCHLORIDE
     Indication: ANALGESIC THERAPY
     Dosage: UNK UNK, UNKNOWN
     Route: 065

REACTIONS (2)
  - Drug ineffective for unapproved indication [Unknown]
  - Drug ineffective [Unknown]
